FAERS Safety Report 21983376 (Version 1)
Quarter: 2023Q1

REPORT INFORMATION
  Report Type: Spontaneous
  Country: US (occurrence: US)
  Receive Date: 20230213
  Receipt Date: 20230213
  Transmission Date: 20230418
  Serious: Yes (Other)
  Sender: FDA-Public Use
  Company Number: US-OTSUKA-2022_039965

PATIENT
  Age: 9 Month
  Sex: Female

DRUGS (8)
  1. BUSULFAN [Suspect]
     Active Substance: BUSULFAN
     Indication: Juvenile chronic myelomonocytic leukaemia
     Dosage: UNK
     Route: 065
  2. BUSULFAN [Suspect]
     Active Substance: BUSULFAN
     Indication: Bone marrow conditioning regimen
  3. AZACITIDINE [Suspect]
     Active Substance: AZACITIDINE
     Indication: Juvenile chronic myelomonocytic leukaemia
     Dosage: UNK
     Route: 065
  4. MELPHALAN [Suspect]
     Active Substance: MELPHALAN
     Indication: Juvenile chronic myelomonocytic leukaemia
     Dosage: UNK
     Route: 065
  5. MELPHALAN [Suspect]
     Active Substance: MELPHALAN
     Indication: Bone marrow conditioning regimen
  6. CYCLOPHOSPHAMIDE [Suspect]
     Active Substance: CYCLOPHOSPHAMIDE
     Indication: Juvenile chronic myelomonocytic leukaemia
     Dosage: UNK
     Route: 065
  7. CYCLOPHOSPHAMIDE [Suspect]
     Active Substance: CYCLOPHOSPHAMIDE
     Indication: Bone marrow conditioning regimen
  8. MERCAPTOPURINE [Concomitant]
     Active Substance: MERCAPTOPURINE
     Indication: Leukocytosis
     Dosage: UNK
     Route: 065

REACTIONS (3)
  - Cytomegalovirus viraemia [Unknown]
  - Bacteraemia [Unknown]
  - Product use in unapproved indication [Unknown]
